FAERS Safety Report 19083926 (Version 1)
Quarter: 2021Q2

REPORT INFORMATION
  Report Type: Spontaneous
  Country: FR (occurrence: FR)
  Receive Date: 20210401
  Receipt Date: 20210401
  Transmission Date: 20210717
  Serious: Yes (Death)
  Sender: FDA-Public Use
  Company Number: FR-TEVA-2021-FR-1895920

PATIENT
  Age: 61 Year
  Sex: Male

DRUGS (3)
  1. ASPEGIC (ACETYLSALICYLATE LYSINE) [Suspect]
     Active Substance: ASPIRIN DL-LYSINE
     Indication: ANEURYSM REPAIR
     Dosage: 250 MG
     Route: 048
     Dates: start: 20201106, end: 20210126
  2. RAMIPRIL. [Suspect]
     Active Substance: RAMIPRIL
     Indication: HYPERTENSION
     Route: 048
     Dates: end: 20210126
  3. EFIENT 10 MG, COMPRIME PELLICULE [Suspect]
     Active Substance: PRASUGREL HYDROCHLORIDE
     Indication: ANEURYSM REPAIR
     Dosage: 10 MG
     Route: 048
     Dates: start: 20201106, end: 20210126

REACTIONS (1)
  - Meningorrhagia [Fatal]

NARRATIVE: CASE EVENT DATE: 20210127
